FAERS Safety Report 6603402-8 (Version None)
Quarter: 2010Q1

REPORT INFORMATION
  Report Type: 
  Country: None (occurrence: None)
  Receive Date: 20100226
  Receipt Date: 20090420
  Transmission Date: 20100710
  Serious: No
  Sender: FDA-Public Use
  Company Number: A0779671A

PATIENT
  Age: 62 Year
  Sex: Male

DRUGS (14)
  1. VALTREX [Suspect]
     Dosage: 500MG TWICE PER DAY
     Route: 048
     Dates: start: 20090417, end: 20090418
  2. COMBIVENT [Concomitant]
  3. SPIRIVA [Concomitant]
  4. ADVAIR DISKUS 100/50 [Concomitant]
  5. PRILOSEC [Concomitant]
  6. SOMA [Concomitant]
  7. HYDROCODONE [Concomitant]
  8. LORAZEPAM [Concomitant]
  9. CLARITIN [Concomitant]
  10. RISPERIDON [Concomitant]
  11. UNKNOWN MEDICATION [Concomitant]
  12. LISINOPRIL [Concomitant]
  13. TEMAZEPAM [Concomitant]
  14. CHANTIX [Concomitant]

REACTIONS (3)
  - CHEST DISCOMFORT [None]
  - HYPERHIDROSIS [None]
  - PALPITATIONS [None]
